FAERS Safety Report 19247387 (Version 2)
Quarter: 2021Q2

REPORT INFORMATION
  Report Type: Report from Study
  Country: US (occurrence: US)
  Receive Date: 20210512
  Receipt Date: 20210611
  Transmission Date: 20210717
  Serious: Yes (Death, Other)
  Sender: FDA-Public Use
  Company Number: US-TRAVERE THERAPEUTICS, INC.-2021RTN00073

PATIENT
  Age: 1 Year
  Sex: Female

DRUGS (1)
  1. CHOLIC ACID [Suspect]
     Active Substance: CHOLIC ACID
     Indication: CEREBROHEPATORENAL SYNDROME
     Dosage: 100 MG, 1X/DAY
     Dates: start: 20200708

REACTIONS (3)
  - Cardiac arrest [Fatal]
  - Femur fracture [Unknown]
  - International normalised ratio increased [Unknown]

NARRATIVE: CASE EVENT DATE: 202103
